FAERS Safety Report 23552363 (Version 3)
Quarter: 2024Q2

REPORT INFORMATION
  Report Type: Spontaneous
  Country: JP (occurrence: JP)
  Receive Date: 20240222
  Receipt Date: 20240607
  Transmission Date: 20240716
  Serious: Yes (Death, Life-Threatening, Hospitalization, Other)
  Sender: FDA-Public Use
  Company Number: JP-ASTELLAS-2024JP001362

PATIENT
  Age: 57 Year
  Sex: Male
  Weight: 58.5 kg

DRUGS (7)
  1. PADCEV [Suspect]
     Active Substance: ENFORTUMAB VEDOTIN-EJFV
     Indication: Transitional cell carcinoma metastatic
     Dosage: 1.25 MG/KG (73 MG), UNKNOWN FREQ.
     Route: 041
     Dates: start: 20240123, end: 20240123
  2. TOPIROXOSTAT [Concomitant]
     Active Substance: TOPIROXOSTAT
     Indication: Hyperuricaemia
     Route: 048
     Dates: start: 20220927
  3. CALCIUM LACTATE [Concomitant]
     Active Substance: CALCIUM LACTATE
     Indication: Hypocalcaemia
     Route: 048
     Dates: start: 20220927
  4. ALFAROL [Concomitant]
     Active Substance: ALFACALCIDOL
     Indication: Hypocalcaemia
     Dosage: 0.25 ?G, ONCE DAILY
     Route: 048
     Dates: start: 20220927
  5. SITAFLOXACIN [Concomitant]
     Active Substance: SITAFLOXACIN
     Indication: Infection
     Route: 048
     Dates: start: 20240123, end: 20240127
  6. DIETARY SUPPLEMENT\PROBIOTICS [Concomitant]
     Active Substance: DIETARY SUPPLEMENT\PROBIOTICS NOS
     Indication: Diarrhoea
     Dosage: UNK UNK, THRICE DAILY
     Route: 048
     Dates: start: 20240123, end: 20240130
  7. CALONAL [Concomitant]
     Active Substance: ACETAMINOPHEN
     Indication: Pain
     Dosage: 600 MG, AS NEEDED, AT THE TIME OF PAIN
     Route: 048
     Dates: start: 20240123

REACTIONS (1)
  - Bladder perforation [Fatal]

NARRATIVE: CASE EVENT DATE: 20240125
